FAERS Safety Report 13157447 (Version 1)
Quarter: 2017Q1

REPORT INFORMATION
  Report Type: Spontaneous
  Country: US (occurrence: US)
  Receive Date: 20170127
  Receipt Date: 20170127
  Transmission Date: 20170428
  Serious: No
  Sender: FDA-Public Use
  Company Number: US-ASTRAZENECA-2017SE05027

PATIENT
  Age: 24342 Day
  Sex: Female

DRUGS (1)
  1. PULMICORT FLEXHALER [Suspect]
     Active Substance: BUDESONIDE
     Indication: COUGH
     Dosage: 180 MCG, TWO PUFFS TWICE A DAY
     Route: 055
     Dates: start: 20170116

REACTIONS (4)
  - Product use issue [Unknown]
  - Off label use [Not Recovered/Not Resolved]
  - Circumstance or information capable of leading to medication error [Unknown]
  - Device use error [Unknown]

NARRATIVE: CASE EVENT DATE: 20170116
